FAERS Safety Report 10411754 (Version 2)
Quarter: 2014Q4

REPORT INFORMATION
  Report Type: Spontaneous
  Country: None (occurrence: None)
  Receive Date: 20140604
  Receipt Date: 20141205
  Transmission Date: 20150528
  Serious: No
  Sender: FDA-Public Use
  Company Number: 163-POMAL-14044775

PATIENT
  Age: 59 Year
  Sex: Female
  Weight: 72.1 kg

DRUGS (12)
  1. ACYCLOVIR (ACICLOVIR) [Concomitant]
  2. VALTREX [Concomitant]
     Active Substance: VALACYCLOVIR HYDROCHLORIDE
  3. CIPROFLOXACIN HCL (CIPROFLOXACIN HYDROCHLORIDE) [Concomitant]
  4. SANCUSO (GRANISETRON HYDROCHLORIDE) [Concomitant]
  5. DEXAMETHASONE (DEXAMETHASONE) [Concomitant]
     Active Substance: DEXAMETHASONE
  6. KYPROLIS [Concomitant]
     Active Substance: CARFILZOMIB
  7. PROCRIT (ERYTHROPOIETIN) [Concomitant]
  8. LIDOCAINE PRILOCAINE (LIDOCAINE, PRILOCAINE) [Concomitant]
  9. OXYCONTIN [Concomitant]
     Active Substance: OXYCODONE HYDROCHLORIDE
  10. POMALYST [Suspect]
     Active Substance: POMALIDOMIDE
     Indication: PLASMA CELL MYELOMA
     Dosage: 21 IN 28D
     Route: 048
     Dates: start: 20140129
  11. OXYCODONE HCL (OXYCODONE HYDROCHLORIDE) [Concomitant]
  12. ONDANSETRON HCL (ONDANSETRON HYDROCHLORIDE) [Concomitant]

REACTIONS (3)
  - Asthenia [None]
  - Plasma cell myeloma [None]
  - Laboratory test abnormal [None]
